FAERS Safety Report 5017498-0 (Version None)
Quarter: 2006Q2

REPORT INFORMATION
  Report Type: 
  Country: None (occurrence: None)
  Receive Date: 20060601
  Receipt Date: 20060601
  Transmission Date: 20061013
  Serious: Yes (Disabling)
  Sender: FDA-Public Use
  Company Number: None

PATIENT
  Age: 47 Year
  Sex: Female
  Weight: 63.5036 kg

DRUGS (2)
  1. BONIVA [Suspect]
     Indication: MUSCLE SPASMS
     Dosage: 150 MG. X 1 DOSE PO
     Route: 048
     Dates: start: 20060513
  2. ALEVE (CAPLET) [Concomitant]

REACTIONS (7)
  - DIFFICULTY IN WALKING [None]
  - EXERCISE TOLERANCE DECREASED [None]
  - FALL [None]
  - FLANK PAIN [None]
  - GAIT DISTURBANCE [None]
  - MUSCLE SPASMS [None]
  - PAIN IN EXTREMITY [None]
